FAERS Safety Report 11695930 (Version 1)
Quarter: 2015Q4

REPORT INFORMATION
  Report Type: Spontaneous
  Country: AU (occurrence: None)
  Receive Date: 20151103
  Receipt Date: 20151103
  Transmission Date: 20160304
  Serious: No
  Sender: FDA-Public Use
  Company Number: None

PATIENT
  Age: 33 Year
  Sex: Male
  Weight: 85 kg

DRUGS (10)
  1. SEROQUEL [Concomitant]
     Active Substance: QUETIAPINE FUMARATE
  2. ZINC [Suspect]
     Active Substance: ZINC\ZINC CHLORIDE
  3. MELATONIN [Concomitant]
     Active Substance: MELATONIN
  4. ARGININE [Concomitant]
     Active Substance: ARGININE
  5. SAPHRIS [Suspect]
     Active Substance: ASENAPINE MALEATE
     Indication: ANXIETY
     Dosage: 1 WAFER UNDER THE TONGUE
     Route: 060
  6. NIACIN. [Concomitant]
     Active Substance: NIACIN
  7. PRISTIQ EXTENDED RELEASE [Concomitant]
     Active Substance: DESVENLAFAXINE SUCCINATE
  8. OMEGA 3 [Concomitant]
     Active Substance: OMEGA-3 FATTY ACIDS
  9. ASHWAGANDHA [Concomitant]
     Active Substance: HERBALS
  10. ZYPREXA [Concomitant]
     Active Substance: OLANZAPINE

REACTIONS (3)
  - Insomnia [None]
  - Anhedonia [None]
  - Drug withdrawal syndrome [None]

NARRATIVE: CASE EVENT DATE: 20150402
